FAERS Safety Report 7150729-X (Version None)
Quarter: 2010Q4

REPORT INFORMATION
  Report Type: 
  Country: None (occurrence: None)
  Receive Date: 20101124
  Receipt Date: 20101109
  Transmission Date: 20110411
  Serious: Yes (Other)
  Sender: FDA-Public Use
  Company Number: 1000017400

PATIENT
  Sex: Female

DRUGS (1)
  1. ESCITALOPRAM [Suspect]
     Dosage: ORAL
     Route: 048

REACTIONS (3)
  - ANGLE CLOSURE GLAUCOMA [None]
  - HEADACHE [None]
  - PHOTOPHOBIA [None]
